FAERS Safety Report 14745843 (Version 1)
Quarter: 2018Q2

REPORT INFORMATION
  Report Type: Report from Study
  Country: JP (occurrence: JP)
  Receive Date: 20180411
  Receipt Date: 20180411
  Transmission Date: 20180711
  Serious: Yes (Hospitalization)
  Sender: FDA-Public Use
  Company Number: JP-ACTELION-A-CH2017-164841

PATIENT
  Age: 57 Year
  Sex: Female

DRUGS (13)
  1. BONOTEO [Concomitant]
     Active Substance: MINODRONIC ACID
  2. OPSUMIT [Suspect]
     Active Substance: MACITENTAN
     Indication: PULMONARY ARTERIAL HYPERTENSION
     Dosage: 10 MG, QD
     Route: 048
     Dates: start: 20170727, end: 20170904
  3. TENORMIN [Concomitant]
     Active Substance: ATENOLOL
  4. PROCYLIN [Concomitant]
     Active Substance: BERAPROST SODIUM
  5. TAKEPRON [Concomitant]
     Active Substance: LANSOPRAZOLE
  6. UPTRAVI [Suspect]
     Active Substance: SELEXIPAG
     Indication: PULMONARY ARTERIAL HYPERTENSION
     Dosage: 0.4 MG, QD
     Route: 048
     Dates: start: 20170809, end: 20170911
  7. FUROSEMIDE. [Concomitant]
     Active Substance: FUROSEMIDE
  8. PRAVASTATIN NA [Concomitant]
     Active Substance: PRAVASTATIN SODIUM
  9. MUCOSTA [Concomitant]
     Active Substance: REBAMIPIDE
  10. ADEMPAS [Concomitant]
     Active Substance: RIOCIGUAT
  11. ADALAT [Concomitant]
     Active Substance: NIFEDIPINE
  12. MEDROL [Concomitant]
     Active Substance: METHYLPREDNISOLONE
  13. ZETIA [Concomitant]
     Active Substance: EZETIMIBE

REACTIONS (5)
  - Anaemia [Recovering/Resolving]
  - Transfusion [Unknown]
  - Enterocolitis [Recovering/Resolving]
  - Vomiting [Recovering/Resolving]
  - Diarrhoea [Recovering/Resolving]

NARRATIVE: CASE EVENT DATE: 20170809
